FAERS Safety Report 9838556 (Version 1)
Quarter: 2014Q1

REPORT INFORMATION
  Report Type: Spontaneous
  Country: CA (occurrence: CA)
  Receive Date: 20140123
  Receipt Date: 20140123
  Transmission Date: 20141002
  Serious: Yes (Hospitalization, Other)
  Sender: FDA-Public Use
  Company Number: CA-BAYER-2014-007613

PATIENT
  Age: 53 Year
  Sex: Male
  Weight: 91 kg

DRUGS (12)
  1. NEXAVAR [Suspect]
     Dosage: 400 MG (2 TABLET EVERY 1 DAY)
     Route: 048
  2. AVANDAMET [Suspect]
  3. GLICLAZIDE [Suspect]
  4. JANUVIA [Suspect]
  5. LEVEMIR [Suspect]
     Route: 058
  6. METOPROLOL [Suspect]
  7. SUTENT [Suspect]
     Dosage: 50 MG, QD
     Route: 048
  8. ASA [Concomitant]
  9. AVALIDE [Concomitant]
  10. CADUET [Concomitant]
  11. DIAMICRON [Concomitant]
  12. LISINOPRIL [Concomitant]

REACTIONS (3)
  - Metabolic acidosis [None]
  - Vomiting projectile [None]
  - Hypoglycaemia [None]
